FAERS Safety Report 21187962 (Version 1)
Quarter: 2022Q3

REPORT INFORMATION
  Report Type: Report from Study
  Country: CA (occurrence: CA)
  Receive Date: 20220809
  Receipt Date: 20220809
  Transmission Date: 20221026
  Serious: Yes (Hospitalization)
  Sender: FDA-Public Use
  Company Number: CA-JNJFOC-20220806618

PATIENT
  Age: 7 Decade
  Sex: Female

DRUGS (1)
  1. REMICADE [Suspect]
     Active Substance: INFLIXIMAB
     Indication: Crohn^s disease
     Route: 042
     Dates: start: 20210510

REACTIONS (8)
  - Hospitalisation [Unknown]
  - Fungal infection [Unknown]
  - Mental disorder [Unknown]
  - Panic attack [Unknown]
  - Agitation [Unknown]
  - Feeling abnormal [Unknown]
  - Fatigue [Unknown]
  - Headache [Unknown]

NARRATIVE: CASE EVENT DATE: 20220101
